FAERS Safety Report 18049809 (Version 2)
Quarter: 2020Q3

REPORT INFORMATION
  Report Type: Report from Study
  Country: EG (occurrence: EG)
  Receive Date: 20200721
  Receipt Date: 20200723
  Transmission Date: 20201103
  Serious: Yes (Disabling)
  Sender: FDA-Public Use
  Company Number: EG-NOVOPROD-741144

PATIENT
  Age: 73 Year
  Sex: Female
  Weight: 110 kg

DRUGS (4)
  1. ASPOCID [Concomitant]
     Active Substance: ASPIRIN
     Indication: HAEMOPHILIA
     Dosage: 1 TAB DAILY, SINCE 10 YEARS
     Route: 048
  2. CONCOR [Concomitant]
     Active Substance: BISOPROLOL FUMARATE
     Indication: HYPERTENSION
     Dosage: 10, 1 TAB MORNING ?1 NIGHT, SINCE 3 YEARS AGO
     Route: 048
  3. MIXTARD 30 HM PENFILL [Suspect]
     Active Substance: INSULIN HUMAN
     Indication: DIABETES MELLITUS
     Dosage: UNK  (FROM 2 YEARS)
     Route: 058
  4. MIXTARD 30 HM PENFILL [Suspect]
     Active Substance: INSULIN HUMAN
     Dosage: 70 IU, QD (50U MORNING?20U NIGHT)
     Route: 058

REACTIONS (6)
  - Neuropathy peripheral [Not Recovered/Not Resolved]
  - Wrong technique in product usage process [Unknown]
  - Drug ineffective [Unknown]
  - Sciatica [Not Recovered/Not Resolved]
  - Increased insulin requirement [Unknown]
  - Hyperglycaemia [Not Recovered/Not Resolved]
